FAERS Safety Report 7946055-9 (Version None)
Quarter: 2011Q4

REPORT INFORMATION
  Report Type: 
  Country: None (occurrence: None)
  Receive Date: 20111129
  Receipt Date: 20111122
  Transmission Date: 20120403
  Serious: Yes (Death)
  Sender: FDA-Public Use
  Company Number: CA-GLAXOSMITHKLINE-A0954410A

PATIENT
  Sex: Male

DRUGS (5)
  1. BISOPROLOL FUMARATE [Concomitant]
  2. VOTRIENT [Suspect]
     Indication: RENAL CANCER METASTATIC
     Dosage: 800MG PER DAY
     Route: 048
     Dates: start: 20110201
  3. ASPIRIN [Concomitant]
  4. ATACAND [Concomitant]
  5. PLAVIX [Concomitant]

REACTIONS (1)
  - DEATH [None]
